FAERS Safety Report 5907095-4 (Version None)
Quarter: 2008Q4

REPORT INFORMATION
  Report Type: 
  Country: None (occurrence: None)
  Receive Date: 20081003
  Receipt Date: 20080929
  Transmission Date: 20090506
  Serious: Yes (Death, Other)
  Sender: FDA-Public Use
  Company Number: SE-CELGENEUS-150-C5013-08020041

PATIENT
  Sex: Female
  Weight: 68 kg

DRUGS (7)
  1. REVLIMID [Suspect]
     Indication: 5Q MINUS SYNDROME
     Route: 048
     Dates: start: 20060627, end: 20070819
  2. COLECALCIFEROL [Concomitant]
     Indication: OSTEOPOROSIS
     Route: 048
     Dates: start: 20010101, end: 20080201
  3. ACETYLSALICYLIC ACID SRT [Concomitant]
     Indication: ANGINA PECTORIS
     Route: 048
     Dates: start: 20000101, end: 20080201
  4. LEVOTHYROXINE SODIUM [Concomitant]
     Indication: HYPOTHYROIDISM
     Route: 048
     Dates: start: 20000101, end: 20080201
  5. GABAPENTIN [Concomitant]
     Indication: BACK PAIN
     Route: 048
     Dates: start: 20060322, end: 20080201
  6. GABAPENTIN [Concomitant]
     Indication: SPINAL CORD COMPRESSION
  7. ACETAMINOPHEN [Concomitant]
     Indication: MYALGIA
     Route: 048
     Dates: start: 20071105, end: 20080201

REACTIONS (3)
  - CLONAL EVOLUTION [None]
  - DISEASE PROGRESSION [None]
  - REFRACTORY ANAEMIA WITH AN EXCESS OF BLASTS [None]
